FAERS Safety Report 8509077-5 (Version None)
Quarter: 2012Q3

REPORT INFORMATION
  Report Type: 
  Country: None (occurrence: None)
  Receive Date: 20120713
  Receipt Date: 20120711
  Transmission Date: 20120928
  Serious: Yes (Life-Threatening)
  Sender: FDA-Public Use
  Company Number: DE-B.I. PHARMACEUTICALS,INC./RIDGEFIELD-2012-DE-01619DE

PATIENT
  Sex: Female
  Weight: 68 kg

DRUGS (6)
  1. AMIODARONE HCL [Suspect]
     Indication: ATRIAL FIBRILLATION
     Dosage: 200 MG
     Dates: start: 20120614
  2. PRADAXA [Suspect]
     Indication: ATRIAL FIBRILLATION
     Dosage: 220 MG
     Dates: start: 20120614
  3. SPIRONOLACTONE [Suspect]
     Indication: ATRIAL FIBRILLATION
     Dosage: 25 MG
     Dates: start: 20120614
  4. SIMVASTATIN [Concomitant]
  5. METOPROLOL TARTRATE [Concomitant]
  6. COAPPROVEL [Concomitant]

REACTIONS (1)
  - RENAL FAILURE ACUTE [None]
